FAERS Safety Report 23289101 (Version 1)
Quarter: 2023Q4

REPORT INFORMATION
  Report Type: Spontaneous
  Country: US (occurrence: US)
  Receive Date: 20231212
  Receipt Date: 20231212
  Transmission Date: 20240110
  Serious: Yes (Other)
  Sender: FDA-Public Use
  Company Number: US-SPECGX-T202302308

PATIENT
  Age: 37 Year
  Sex: Female

DRUGS (26)
  1. OXYCODONE [Suspect]
     Active Substance: OXYCODONE
     Indication: Pelvic pain
     Dosage: 10 TO 15 MG, EVERY FOUR HOURS, AS NEEDED (MAXIMUM 50 MG/D)
     Route: 065
  2. OXYCODONE [Suspect]
     Active Substance: OXYCODONE
     Dosage: 10 MILLIGRAM, QD (MAX OF 6 TABLETS) (WEEK 1)
     Route: 065
  3. OXYCODONE [Suspect]
     Active Substance: OXYCODONE
     Dosage: 10 MILLIGRAM, QD (MAX OF 6 TABLETS) (WEEK 2)
     Route: 065
  4. OXYCODONE [Suspect]
     Active Substance: OXYCODONE
     Dosage: MAX 5.5 TABS FOR 4 DAYS (WEEK 3)
     Route: 065
  5. OXYCODONE [Suspect]
     Active Substance: OXYCODONE
     Dosage: 5 TABS FOR 3 DAYS (WEEK 3)
     Route: 065
  6. OXYCODONE [Suspect]
     Active Substance: OXYCODONE
     Dosage: MAX 4 TABS FOR 4 DAYS (WEEK 4)
     Route: 065
  7. OXYCODONE [Suspect]
     Active Substance: OXYCODONE
     Dosage: 3 TABS FOR 3 DAYS (WEEK 4)
     Route: 065
  8. OXYCODONE [Suspect]
     Active Substance: OXYCODONE
     Dosage: MAX 2.5 TABS FOR 4 DAYS (WEEK 5)
     Route: 065
  9. OXYCODONE [Suspect]
     Active Substance: OXYCODONE
     Dosage: 2 TABS FOR 3 DAYS (WEEK 5)
     Route: 065
  10. OXYCODONE [Suspect]
     Active Substance: OXYCODONE
     Dosage: MAX 1 TAB FOR 4 DAYS (WEEK 6)
     Route: 065
  11. MORPHINE [Suspect]
     Active Substance: MORPHINE
     Indication: Pelvic pain
     Dosage: 15 MILLIGRAM, Q8H
     Route: 065
  12. MORPHINE [Suspect]
     Active Substance: MORPHINE
     Dosage: 15 MILLIGRAM, BID (WEEK 1)
     Route: 048
  13. MORPHINE [Suspect]
     Active Substance: MORPHINE
     Dosage: 15 MILLIGRAM, QHS (WEEK 2)
     Route: 048
  14. DEXTROAMPHET SACCHARAT, AMPHET ASPARTATE, DEXTROAMPHET SULFATE AND AMP [Suspect]
     Active Substance: AMPHETAMINE ASPARTATE\AMPHETAMINE ASPARTATE MONOHYDRATE\AMPHETAMINE SULFATE\DEXTROAMPHETAMINE SACCHA
     Indication: Attention deficit hyperactivity disorder
     Dosage: UNK
     Route: 065
  15. PREGABALIN [Suspect]
     Active Substance: PREGABALIN
     Indication: Pelvic pain
     Dosage: UNK
     Route: 065
  16. NAPROXEN [Suspect]
     Active Substance: NAPROXEN
     Indication: Pelvic pain
     Dosage: UNK
     Route: 065
  17. BACLOFEN [Suspect]
     Active Substance: BACLOFEN
     Indication: Pelvic pain
     Dosage: UNK
     Route: 065
  18. LISDEXAMFETAMINE [Suspect]
     Active Substance: LISDEXAMFETAMINE
     Indication: Attention deficit hyperactivity disorder
     Dosage: UNK
     Route: 065
  19. BUPRENORPHINE [Suspect]
     Active Substance: BUPRENORPHINE
     Indication: Product used for unknown indication
     Dosage: 2 MILLIGRAM  (1/2 TABLET TWICE DAILY) (WEEK 3)
     Route: 060
  20. BUPRENORPHINE [Suspect]
     Active Substance: BUPRENORPHINE
     Dosage: 2 MILLIGRAM (1 TABLET TWICE DAILY WITH NOON 1/2 TABLET FOR 4 DAYS) (WEEK 4)
     Route: 060
  21. BUPRENORPHINE [Suspect]
     Active Substance: BUPRENORPHINE
     Dosage: 2 MILLIGRAM  (1 TABLET 3 TIMES DAILY FOR 3 DAYS) (WEEK 4)
     Route: 060
  22. BUPRENORPHINE [Suspect]
     Active Substance: BUPRENORPHINE
     Dosage: 2 MILLIGRAM (1 TABLET 3 TIMES DAILY WITH 1/2 TABLET DAILY AS NEEDED) (WEEK 5)
     Route: 060
  23. BUPRENORPHINE [Suspect]
     Active Substance: BUPRENORPHINE
     Dosage: 2 MILLIGRAM (1 TABLET 3 TIMES DAILY WITH 1/2 TABLET TWICE DAILY AS NEEDED) (WEEK 6)
     Route: 060
  24. BUPRENORPHINE [Suspect]
     Active Substance: BUPRENORPHINE
     Dosage: 10 MILLIGRAM, QD (IN DIVIDED DOSES)
     Route: 065
  25. BUPRENORPHINE\NALOXONE [Suspect]
     Active Substance: BUPRENORPHINE\NALOXONE
     Indication: Product used for unknown indication
     Dosage: 2-0.5 MG, 1/4 FILM TWICE DAILY (WEEK 1)
     Route: 060
  26. BUPRENORPHINE\NALOXONE [Suspect]
     Active Substance: BUPRENORPHINE\NALOXONE
     Dosage: 2-0.5 MG, 1/4 FILM 3 TIMES DAILY (WEEK 2)
     Route: 060

REACTIONS (11)
  - Tachycardia foetal [Recovered/Resolved]
  - Gestational hypertension [Recovered/Resolved]
  - Dysstasia [Recovered/Resolved]
  - Tobacco user [Unknown]
  - Gait disturbance [Recovered/Resolved]
  - Nausea [Recovered/Resolved]
  - Insomnia [Recovered/Resolved]
  - Pyrexia [Recovered/Resolved]
  - Arthralgia [Unknown]
  - Back pain [Unknown]
  - Exposure during pregnancy [Unknown]
